FAERS Safety Report 9181677 (Version 1)
Quarter: 2013Q1

REPORT INFORMATION
  Report Type: Spontaneous
  Country: US (occurrence: US)
  Receive Date: 20130322
  Receipt Date: 20130322
  Transmission Date: 20140127
  Serious: Yes (Other)
  Sender: FDA-Public Use
  Company Number: US-JNJFOC-20130309932

PATIENT
  Age: 7 Year
  Sex: Male

DRUGS (1)
  1. CHILDRENS MOTRIN [Suspect]
     Indication: PYREXIA
     Route: 065

REACTIONS (3)
  - Hallucination [Unknown]
  - Palpitations [Unknown]
  - Abnormal behaviour [Unknown]
